FAERS Safety Report 7016794-5 (Version None)
Quarter: 2010Q3

REPORT INFORMATION
  Report Type: 
  Country: None (occurrence: None)
  Receive Date: 20100927
  Receipt Date: 20100924
  Transmission Date: 20110219
  Serious: Yes (Other)
  Sender: FDA-Public Use
  Company Number: IN-ROXANE LABORATORIES, INC.-2010-RO-01271RO

PATIENT
  Age: 1 Year
  Sex: Female

DRUGS (5)
  1. METHOTREXATE [Suspect]
     Indication: ACUTE LYMPHOCYTIC LEUKAEMIA
  2. AMIKACIN [Suspect]
     Indication: ACUTE LYMPHOCYTIC LEUKAEMIA
  3. PIPERACILLIN AND TAZOBACTAM [Suspect]
     Indication: ACUTE LYMPHOCYTIC LEUKAEMIA
  4. PREDNISOLONE [Suspect]
     Indication: ACUTE LYMPHOCYTIC LEUKAEMIA
  5. VINCRISTINE [Suspect]
     Indication: ACUTE LYMPHOCYTIC LEUKAEMIA

REACTIONS (5)
  - ANAL ABSCESS [None]
  - GASTROENTERITIS PSEUDOMONAS [None]
  - PSEUDOMONAS INFECTION [None]
  - SUBCUTANEOUS ABSCESS [None]
  - VIITH NERVE PARALYSIS [None]
